FAERS Safety Report 17915095 (Version 1)
Quarter: 2020Q2

REPORT INFORMATION
  Report Type: Report from Study
  Country: None (occurrence: US)
  Receive Date: 20200618
  Receipt Date: 20200618
  Transmission Date: 20200714
  Serious: Yes (Other)
  Sender: FDA-Public Use
  Company Number: US-ABBVIE-20K-163-3378483-00

PATIENT
  Sex: Female

DRUGS (2)
  1. HUMIRA [Suspect]
     Active Substance: ADALIMUMAB
     Dosage: CITRATE FREE
     Route: 058
  2. HUMIRA [Suspect]
     Active Substance: ADALIMUMAB
     Indication: RHEUMATOID ARTHRITIS
     Dosage: CITRATE FREE
     Route: 058

REACTIONS (9)
  - Loss of personal independence in daily activities [Unknown]
  - Peripheral artery aneurysm [Recovering/Resolving]
  - Ear disorder [Not Recovered/Not Resolved]
  - Arthritis [Recovering/Resolving]
  - Dysgraphia [Unknown]
  - Toothache [Not Recovered/Not Resolved]
  - Device physical property issue [Not Recovered/Not Resolved]
  - Facial pain [Not Recovered/Not Resolved]
  - Bone pain [Not Recovered/Not Resolved]
